FAERS Safety Report 5614723-X (Version None)
Quarter: 2008Q1

REPORT INFORMATION
  Report Type: 
  Country: None (occurrence: None)
  Receive Date: 20080131
  Receipt Date: 20080121
  Transmission Date: 20080703
  Serious: Yes (Life-Threatening, Hospitalization)
  Sender: FDA-Public Use
  Company Number: 2008-00344

PATIENT
  Age: 32 Year
  Sex: Female

DRUGS (1)
  1. METOPROLOL TARTRATE [Suspect]
     Indication: HYPERTROPHIC CARDIOMYOPATHY
     Dosage: 100 MG, BID, ORAL; 50 MG, BID X 1 WEEK, ORAL
     Route: 048

REACTIONS (2)
  - HYPERSENSITIVITY [None]
  - MYOCARDITIS [None]
